FAERS Safety Report 9061813 (Version 2)
Quarter: 2013Q1

REPORT INFORMATION
  Report Type: Spontaneous
  Country: AU (occurrence: AU)
  Receive Date: 20130204
  Receipt Date: 20130322
  Transmission Date: 20140127
  Serious: No
  Sender: FDA-Public Use
  Company Number: PHHY2013AU009335

PATIENT
  Sex: Female

DRUGS (6)
  1. TASIGNA [Suspect]
     Indication: CHRONIC MYELOID LEUKAEMIA
     Dosage: 800 MG
     Dates: start: 20110101
  2. TASIGNA [Suspect]
     Dosage: 400 MG
  3. AVAPRO [Concomitant]
  4. NOTEN [Concomitant]
  5. NEXIUM 1-2-3 [Concomitant]
  6. DEXMETHSONE [Concomitant]

REACTIONS (6)
  - Nausea [Not Recovered/Not Resolved]
  - Lethargy [Unknown]
  - Malaise [Unknown]
  - Asthenia [Unknown]
  - Weight decreased [Unknown]
  - Burning sensation [Unknown]
